FAERS Safety Report 8708361 (Version 2)
Quarter: 2012Q4

REPORT INFORMATION
  Report Type: 
  Country: JP (occurrence: JP)
  Receive Date: 20120806
  Receipt Date: 20121004
  Transmission Date: 20130627
  Serious: Yes (Death)
  Sender: FDA-Public Use
  Company Number: JP-BAYER-2011-012497

PATIENT
  Age: 74 Year
  Sex: Male
  Weight: 66 kg

DRUGS (12)
  1. NEXAVAR [Suspect]
     Indication: HEPATIC NEOPLASM MALIGNANT
     Dosage: 400 mg, BID
     Route: 048
     Dates: start: 20110126, end: 20110201
  2. NEXAVAR [Suspect]
     Indication: HEPATIC NEOPLASM MALIGNANT
     Dosage: Daily dose: 400 mg
     Route: 048
     Dates: start: 20110202, end: 20110308
  3. NEXAVAR [Suspect]
     Indication: HEPATIC NEOPLASM MALIGNANT
     Dosage: Daily dose 800 mg
     Route: 048
     Dates: start: 20110309, end: 20110426
  4. NEXAVAR [Suspect]
     Indication: HEPATIC NEOPLASM MALIGNANT
     Dosage: Daily dose 400 mg
     Route: 048
     Dates: start: 20110427, end: 20111005
  5. NEXAVAR [Suspect]
     Indication: HEPATIC NEOPLASM MALIGNANT
     Dosage: Daily dose 400 mg
     Route: 048
     Dates: start: 20111207, end: 20120614
  6. NEXAVAR [Suspect]
     Indication: HEPATIC NEOPLASM MALIGNANT
     Dosage: Daily dose 200 mg
     Route: 048
     Dates: start: 20120615, end: 20120719
  7. UFT [Concomitant]
     Indication: HEPATIC NEOPLASM MALIGNANT
     Dosage: Daily dose 300 mg
     Route: 048
     Dates: start: 20111207, end: 20120719
  8. LASIX [Concomitant]
     Dosage: Daily dose 20 mg
     Route: 048
     Dates: start: 20111012, end: 20120614
  9. LASIX [Concomitant]
     Dosage: Daily dose 40 mg
     Route: 048
     Dates: start: 20120615, end: 20120712
  10. LASIX [Concomitant]
     Dosage: Daily dose 20 mg
     Route: 048
     Dates: start: 20120713, end: 20120719
  11. NU-LOTAN [Concomitant]
     Indication: HYPERTENSION
     Dosage: Daily dose 40 mg
     Route: 048
     Dates: start: 2010, end: 20120719
  12. ADALAT CR [Concomitant]
     Indication: HYPERTENSION
     Dosage: Daily dose 20 mg
     Route: 048
     Dates: start: 20110202, end: 20120719

REACTIONS (2)
  - Blood creatine phosphokinase increased [Not Recovered/Not Resolved]
  - Hepatic cancer [Fatal]
